FAERS Safety Report 11395845 (Version 1)
Quarter: 2015Q3

REPORT INFORMATION
  Report Type: Spontaneous
  Country: US (occurrence: US)
  Receive Date: 20150819
  Receipt Date: 20150819
  Transmission Date: 20151125
  Serious: No
  Sender: FDA-Public Use
  Company Number: US-JNJFOC-20150718944

PATIENT
  Age: 20 Year
  Sex: Female
  Weight: 68 kg

DRUGS (1)
  1. INVEGA SUSTENNA [Suspect]
     Active Substance: PALIPERIDONE PALMITATE
     Indication: SCHIZOPHRENIA
     Route: 030

REACTIONS (3)
  - Blood creatine decreased [Not Recovered/Not Resolved]
  - Creatinine renal clearance increased [Not Recovered/Not Resolved]
  - Therapeutic response decreased [Unknown]

NARRATIVE: CASE EVENT DATE: 2015
